FAERS Safety Report 22296830 (Version 1)
Quarter: 2023Q2

REPORT INFORMATION
  Report Type: Report from Study
  Country: CA (occurrence: CA)
  Receive Date: 20230509
  Receipt Date: 20230509
  Transmission Date: 20230721
  Serious: Yes (Other)
  Sender: FDA-Public Use
  Company Number: CA-CELLTRION INC.-2022CA010757

PATIENT

DRUGS (1)
  1. TRUXIMA [Suspect]
     Active Substance: RITUXIMAB-ABBS
     Indication: Thrombotic thrombocytopenic purpura
     Dosage: TRUXIMA (375MG/M2 X BSA), 800MG WEEKLY X 4, TOTAL: 3200MG

REACTIONS (2)
  - Thrombotic thrombocytopenic purpura [Unknown]
  - Off label use [Unknown]
